FAERS Safety Report 12037166 (Version 1)
Quarter: 2016Q1

REPORT INFORMATION
  Report Type: Spontaneous
  Country: US (occurrence: None)
  Receive Date: 20160205
  Receipt Date: 20160205
  Transmission Date: 20160526
  Serious: No
  Sender: FDA-Public Use
  Company Number: None

PATIENT
  Age: 45 Year
  Sex: Female

DRUGS (1)
  1. TETRABENAZINE 24 MG SUN [Suspect]
     Active Substance: TETRABENAZINE
     Indication: DYSKINESIA
     Route: 048
     Dates: start: 20150903

REACTIONS (5)
  - Throat tightness [None]
  - Dizziness [None]
  - Dyspnoea [None]
  - No reaction on previous exposure to drug [None]
  - Product substitution issue [None]

NARRATIVE: CASE EVENT DATE: 20160103
